FAERS Safety Report 17893267 (Version 3)
Quarter: 2020Q3

REPORT INFORMATION
  Report Type: Report from Study
  Country: None (occurrence: CA)
  Receive Date: 20200614
  Receipt Date: 20200709
  Transmission Date: 20201103
  Serious: Yes (Hospitalization)
  Sender: FDA-Public Use
  Company Number: CA-ABBVIE-20K-028-3443687-00

PATIENT
  Sex: Male

DRUGS (1)
  1. HUMIRA [Suspect]
     Active Substance: ADALIMUMAB
     Indication: ANKYLOSING SPONDYLITIS
     Route: 058
     Dates: start: 20200121

REACTIONS (3)
  - Post procedural complication [Recovering/Resolving]
  - Malaise [Not Recovered/Not Resolved]
  - Gallbladder rupture [Recovering/Resolving]

NARRATIVE: CASE EVENT DATE: 2020
